FAERS Safety Report 5155809-6 (Version None)
Quarter: 2006Q4

REPORT INFORMATION
  Report Type: 
  Country: None (occurrence: None)
  Receive Date: 20061113
  Receipt Date: 20061028
  Transmission Date: 20070319
  Serious: Yes (Other)
  Sender: FDA-Public Use
  Company Number: 25983

PATIENT
  Age: 77 Year
  Sex: Male
  Weight: 86.1834 kg

DRUGS (6)
  1. NIASPAN [Suspect]
     Indication: BLOOD CHOLESTEROL INCREASED
     Dosage: 4000 MG QHS PO
     Route: 048
     Dates: start: 20060901
  2. LIPITOR [Concomitant]
  3. BENICAR [Concomitant]
  4. TOPROL-XL [Concomitant]
  5. PLAVIX [Concomitant]
  6. ZYRTEC [Concomitant]

REACTIONS (4)
  - ACCIDENTAL OVERDOSE [None]
  - FLUSHING [None]
  - HYPOTENSION [None]
  - MEDICATION ERROR [None]
